FAERS Safety Report 8155137-0 (Version None)
Quarter: 2012Q1

REPORT INFORMATION
  Report Type: 
  Country: None (occurrence: None)
  Receive Date: 20120221
  Receipt Date: 20120210
  Transmission Date: 20120608
  Serious: No
  Sender: FDA-Public Use
  Company Number: US-B.I. PHARMACEUTICALS,INC./RIDGEFIELD-2012-BP-02657BP

PATIENT
  Sex: Female

DRUGS (3)
  1. ATELVIA [Concomitant]
     Indication: OSTEOPOROSIS
     Dosage: 35 MG
  2. BUSPIRONE HCL [Concomitant]
     Indication: ANXIETY
  3. PRADAXA [Suspect]
     Indication: ATRIAL FIBRILLATION
     Dosage: 300 MG
     Route: 048
     Dates: start: 20110805

REACTIONS (2)
  - GENITAL RASH [None]
  - DYSURIA [None]
